FAERS Safety Report 9057537 (Version 6)
Quarter: 2014Q1

REPORT INFORMATION
  Report Type: Spontaneous
  Country: US (occurrence: US)
  Receive Date: 20130204
  Receipt Date: 20140212
  Transmission Date: 20141002
  Serious: Yes (Hospitalization, Other)
  Sender: FDA-Public Use
  Company Number: US-PFIZER INC-2013044465

PATIENT
  Age: 60 Year
  Sex: Female
  Weight: 117.91 kg

DRUGS (6)
  1. LYRICA [Suspect]
     Indication: ARTERIAL STENOSIS
     Dosage: 75 MG, 2X/DAY
     Route: 048
     Dates: start: 201211
  2. LYRICA [Suspect]
     Indication: PAIN IN EXTREMITY
     Dosage: INCREASED FROM 75 MG 2X/DAY TO UNKNOWN DOSE FREQUENCY
     Route: 048
  3. LYRICA [Suspect]
     Indication: ARTERIAL STENOSIS
     Dosage: 75 MG, UNK
     Dates: start: 2013
  4. MELOXICAM [Concomitant]
     Dosage: 7.5 MG, 2X/DAY
  5. OXYCODONE [Concomitant]
     Indication: PAIN
     Dosage: 500 MG
  6. LISINOPRIL [Concomitant]
     Indication: HYPERTENSION
     Dosage: 20 MG, DAILY

REACTIONS (8)
  - Off label use [Unknown]
  - Hepatic steatosis [Unknown]
  - Drug ineffective [Unknown]
  - Drug effect decreased [Unknown]
  - Somnolence [Unknown]
  - Pain [Unknown]
  - Back pain [Unknown]
  - Fall [Unknown]
